FAERS Safety Report 14800600 (Version 1)
Quarter: 2018Q2

REPORT INFORMATION
  Report Type: Spontaneous
  Country: US (occurrence: US)
  Receive Date: 20180416
  Receipt Date: 20180416
  Transmission Date: 20180711
  Serious: Yes (Life-Threatening)
  Sender: FDA-Public Use
  Company Number: None

PATIENT
  Age: 67 Year
  Sex: Male
  Weight: 73.8 kg

DRUGS (13)
  1. CARBOPLATIN. [Concomitant]
     Active Substance: CARBOPLATIN
  2. ZINC. [Concomitant]
     Active Substance: ZINC
  3. ALBUTEROL. [Concomitant]
     Active Substance: ALBUTEROL
  4. AMBIEN [Concomitant]
     Active Substance: ZOLPIDEM TARTRATE
  5. TAXOL [Suspect]
     Active Substance: PACLITAXEL
     Indication: LUNG NEOPLASM MALIGNANT
     Dosage: ?          QUANTITY:1 1IV BAG;?
     Route: 042
  6. SIOLTO [Concomitant]
  7. CALCIUM [Concomitant]
     Active Substance: CALCIUM
  8. MAGNESIUM [Concomitant]
     Active Substance: MAGNESIUM
  9. ELIQUIS [Concomitant]
     Active Substance: APIXABAN
  10. FOLIC ACID. [Concomitant]
     Active Substance: FOLIC ACID
  11. ZITHROMAX [Concomitant]
     Active Substance: AZITHROMYCIN DIHYDRATE
  12. ROXANOL [Concomitant]
     Active Substance: MORPHINE SULFATE
  13. FENTANYL. [Concomitant]
     Active Substance: FENTANYL

REACTIONS (1)
  - Anaphylactic reaction [None]

NARRATIVE: CASE EVENT DATE: 20180410
